FAERS Safety Report 4450568-4 (Version None)
Quarter: 2004Q3

REPORT INFORMATION
  Report Type: 
  Country: None (occurrence: None)
  Receive Date: 20040914
  Receipt Date: 20040830
  Transmission Date: 20050211
  Serious: Yes (Hospitalization)
  Sender: FDA-Public Use
  Company Number: 04P-163-0272651-00

PATIENT
  Age: 78 Year
  Sex: Female
  Weight: 38.5557 kg

DRUGS (5)
  1. DEPAKOTE [Suspect]
     Indication: TRAUMATIC BRAIN INJURY
     Dosage: 250 MG, 2 IN 1 D, PER ORAL
     Route: 048
     Dates: start: 20030101
  2. RISPERIDONE [Concomitant]
  3. FLUOXETINE HCL [Concomitant]
  4. ENALAPRIL MALEATE [Concomitant]
  5. DILTIAZEM HYDROCHLORIDE [Concomitant]

REACTIONS (2)
  - CONVULSION [None]
  - TREATMENT NONCOMPLIANCE [None]
